FAERS Safety Report 5726377-2 (Version None)
Quarter: 2008Q2

REPORT INFORMATION
  Report Type: 
  Country: None (occurrence: None)
  Receive Date: 20080502
  Receipt Date: 20080428
  Transmission Date: 20081010
  Serious: Yes (Other)
  Sender: FDA-Public Use
  Company Number: HU-AVENTIS-200813830GDDC

PATIENT
  Age: 61 Year
  Sex: Male

DRUGS (2)
  1. ARAVA [Suspect]
     Indication: RHEUMATOID ARTHRITIS
     Route: 048
     Dates: start: 20050101, end: 20070101
  2. ARAVA [Suspect]
     Route: 048
     Dates: start: 20070101, end: 20080410

REACTIONS (2)
  - HEPATITIS TOXIC [None]
  - MALAISE [None]
